FAERS Safety Report 13154996 (Version 2)
Quarter: 2017Q3

REPORT INFORMATION
  Report Type: Spontaneous
  Country: US (occurrence: US)
  Receive Date: 20170126
  Receipt Date: 20170814
  Transmission Date: 20171127
  Serious: No
  Sender: FDA-Public Use
  Company Number: US-PFIZER INC-2017029429

PATIENT
  Age: 78 Year
  Sex: Female

DRUGS (1)
  1. IBRANCE [Suspect]
     Active Substance: PALBOCICLIB
     Indication: BREAST CANCER FEMALE
     Dosage: 100 MG, CYCLIC (1 CAPSULE DAILY FOR 21 DAYS, THEN 7 DAYS OFF, THEN REPEAT)
     Route: 048
     Dates: start: 20161102

REACTIONS (1)
  - Diarrhoea [Unknown]
